FAERS Safety Report 16119837 (Version 3)
Quarter: 2019Q2

REPORT INFORMATION
  Report Type: Report from Study
  Country: KR (occurrence: KR)
  Receive Date: 20190326
  Receipt Date: 20190416
  Transmission Date: 20190711
  Serious: Yes (Hospitalization)
  Sender: FDA-Public Use
  Company Number: KR-B.I. PHARMACEUTICALS,INC./RIDGEFIELD-2019-BI-012700

PATIENT
  Age: 51 Year
  Sex: Male

DRUGS (5)
  1. VAHELVA [Suspect]
     Active Substance: OLODATEROL\TIOTROPIUM
     Indication: CHRONIC OBSTRUCTIVE PULMONARY DISEASE
     Dosage: 5MCG+5MCG (STRENGTH: 2.5MCG +2.5MCG X 2 PUFFS, ONCE DAILY)
     Route: 055
     Dates: start: 20190123, end: 20190212
  2. MUTERAN [Concomitant]
     Active Substance: ACETYLCYSTEINE
     Indication: CHRONIC OBSTRUCTIVE PULMONARY DISEASE
     Route: 048
     Dates: start: 20190104
  3. ONON [Concomitant]
     Active Substance: PRANLUKAST
     Indication: CHRONIC OBSTRUCTIVE PULMONARY DISEASE
     Route: 048
     Dates: start: 20190104
  4. COUGH SYRUP [Concomitant]
     Active Substance: DEXTROMETHORPHAN HYDROBROMIDE\GUAIFENESIN
     Indication: CHRONIC OBSTRUCTIVE PULMONARY DISEASE
     Dosage: STRENGTH: 20ML/P
     Route: 048
     Dates: start: 20190104
  5. ANYCOUGH [Concomitant]
     Active Substance: THEOBROMINE
     Indication: CHRONIC OBSTRUCTIVE PULMONARY DISEASE
     Route: 048
     Dates: start: 20190104

REACTIONS (1)
  - Dyspnoea [Recovered/Resolved]

NARRATIVE: CASE EVENT DATE: 20190212
